FAERS Safety Report 7712533-0 (Version None)
Quarter: 2011Q3

REPORT INFORMATION
  Report Type: 
  Country: None (occurrence: None)
  Receive Date: 20110822
  Receipt Date: 20110808
  Transmission Date: 20111222
  Serious: Yes (Life-Threatening)
  Sender: FDA-Public Use
  Company Number: LTI2011A00239

PATIENT
  Age: 65 Year
  Sex: Male

DRUGS (2)
  1. ACTOS [Suspect]
     Indication: TYPE 2 DIABETES MELLITUS
     Dosage: 15 MG (15 MG, 1-2) 1 TAB.D ORAL
     Route: 048
     Dates: start: 20090301
  2. PIOGLITAZONE HYDROCHLORIDE/METFORMIN HYDROCHLORIDE [Suspect]
     Indication: TYPE 2 DIABETES MELLITUS
     Dosage: 1 TAB. (1 TAB., 1 IN 1 D) ORAL
     Route: 048
     Dates: start: 20090401, end: 20100823

REACTIONS (5)
  - BLADDER ADENOCARCINOMA STAGE UNSPECIFIED [None]
  - HAEMATURIA [None]
  - METASTASES TO LIVER [None]
  - CONSTIPATION [None]
  - METASTASES TO LUNG [None]
